FAERS Safety Report 19475497 (Version 1)
Quarter: 2021Q2

REPORT INFORMATION
  Report Type: Spontaneous
  Country: DE (occurrence: DE)
  Receive Date: 20210630
  Receipt Date: 20210630
  Transmission Date: 20210717
  Serious: Yes (Hospitalization, Other)
  Sender: FDA-Public Use
  Company Number: DE-AMGEN-DEUSP2021097926

PATIENT
  Age: 77 Year
  Sex: Male
  Weight: 81 kg

DRUGS (6)
  1. ARANESP [Suspect]
     Active Substance: DARBEPOETIN ALFA
     Indication: PRODUCT USED FOR UNKNOWN INDICATION
     Dosage: ONCE PER WEEK, INJECTION?/INFUSION SOLUTION
     Route: 058
  2. BICANORM [Concomitant]
     Active Substance: SODIUM BICARBONATE
     Dosage: 1?0?1?0, TABLET
     Route: 048
  3. BISOPROLOL [Concomitant]
     Active Substance: BISOPROLOL
     Dosage: 5 MG, 0.5?0?0?0, TABLET
     Route: 048
  4. PHENPROCOUMON [Suspect]
     Active Substance: PHENPROCOUMON
     Indication: PRODUCT USED FOR UNKNOWN INDICATION
     Dosage: 3 MG, NACH INR, TABLET
     Route: 048
  5. RENVELA [Concomitant]
     Active Substance: SEVELAMER CARBONATE
     Dosage: 800 MG, 0?1?1?0, TABLET
     Route: 048
  6. CIPROFLOXACIN [CIPROFLOXACIN HYDROCHLORIDE] [Suspect]
     Active Substance: CIPROFLOXACIN HYDROCHLORIDE
     Indication: PRODUCT USED FOR UNKNOWN INDICATION
     Dosage: 250 MG, 1?0?1?0, TABLET
     Route: 048

REACTIONS (5)
  - Dysuria [Unknown]
  - Fatigue [Unknown]
  - Asthenia [Unknown]
  - Haematuria [Unknown]
  - Renal impairment [Unknown]
